FAERS Safety Report 17255653 (Version 1)
Quarter: 2020Q1

REPORT INFORMATION
  Report Type: Spontaneous
  Country: FR (occurrence: FR)
  Receive Date: 20200110
  Receipt Date: 20200110
  Transmission Date: 20200409
  Serious: No
  Sender: FDA-Public Use
  Company Number: FR-BEH-2019110931

PATIENT
  Age: 59 Year
  Sex: Female

DRUGS (1)
  1. RESPREEZA [Suspect]
     Active Substance: .ALPHA.1-PROTEINASE INHIBITOR HUMAN
     Indication: RESPIRATORY DISTRESS
     Dosage: 4 GRAM FOR AN HOUR, 2.5ML/MIN
     Route: 042
     Dates: start: 20191217

REACTIONS (3)
  - Product preparation issue [Unknown]
  - No adverse event [Unknown]
  - Product use in unapproved indication [Unknown]

NARRATIVE: CASE EVENT DATE: 20191217
